FAERS Safety Report 10144375 (Version 1)
Quarter: 2014Q2

REPORT INFORMATION
  Report Type: Spontaneous
  Country: IT (occurrence: IT)
  Receive Date: 20140430
  Receipt Date: 20140430
  Transmission Date: 20141212
  Serious: Yes (Other)
  Sender: FDA-Public Use
  Company Number: IT-MYLANLABS-2014S1003113

PATIENT
  Age: 59 Year
  Sex: Female

DRUGS (1)
  1. DIAZEPAM [Suspect]
     Indication: DEPRESSION
     Dosage: 100 MG TOTAL
     Route: 048
     Dates: start: 20131101, end: 20131101

REACTIONS (4)
  - Toxicity to various agents [Recovering/Resolving]
  - Overdose [Recovering/Resolving]
  - Drug abuse [Recovering/Resolving]
  - Suicide attempt [Recovering/Resolving]
